FAERS Safety Report 15341984 (Version 1)
Quarter: 2018Q3

REPORT INFORMATION
  Report Type: Spontaneous
  Country: US (occurrence: US)
  Receive Date: 20180828
  Receipt Date: 20180828
  Transmission Date: 20181010
  Serious: No
  Sender: FDA-Public Use
  Company Number: None

PATIENT
  Age: 22 Year
  Sex: Male
  Weight: 54.9 kg

DRUGS (15)
  1. ESCITALOPRAM [Suspect]
     Active Substance: ESCITALOPRAM OXALATE
     Indication: DEPRESSION
     Dosage: ?          QUANTITY:1 TABLET(S);?
     Route: 048
     Dates: start: 20180124
  2. ESCITALOPRAM [Suspect]
     Active Substance: ESCITALOPRAM OXALATE
     Indication: ANXIETY
     Dosage: ?          QUANTITY:1 TABLET(S);?
     Route: 048
     Dates: start: 20180124
  3. PHENIBUT [Concomitant]
     Active Substance: DIETARY SUPPLEMENT
  4. ESCITALOPRAM [Suspect]
     Active Substance: ESCITALOPRAM OXALATE
     Indication: OBSESSIVE-COMPULSIVE DISORDER
     Dosage: ?          QUANTITY:1 TABLET(S);?
     Route: 048
     Dates: start: 20180124
  5. N?ACETUL CYSTINE [Concomitant]
  6. CALCIUM [Concomitant]
     Active Substance: CALCIUM
  7. AGED GARLIC POWDER PILLS [Concomitant]
  8. VYVANSE [Suspect]
     Active Substance: LISDEXAMFETAMINE DIMESYLATE
     Indication: ATTENTION DEFICIT/HYPERACTIVITY DISORDER
     Dosage: ?          QUANTITY:1 CAPSULE(S);?
     Route: 048
     Dates: start: 20180624
  9. MAGNESIUM [Concomitant]
     Active Substance: MAGNESIUM
  10. ZINC AND COOPER [Concomitant]
  11. VITAMIN D3 [Concomitant]
     Active Substance: CHOLECALCIFEROL
  12. VITAMIN C [Concomitant]
     Active Substance: ASCORBIC ACID
  13. VITAMIN K2 MK?7 [Concomitant]
  14. ASTAXANTHIN [Concomitant]
  15. SPIRULINA [Concomitant]
     Active Substance: SPIRULINA

REACTIONS (3)
  - Intentional product misuse [None]
  - Enuresis [None]
  - Intentional product use issue [None]

NARRATIVE: CASE EVENT DATE: 20180828
